FAERS Safety Report 8349585-3 (Version None)
Quarter: 2012Q2

REPORT INFORMATION
  Report Type: 
  Country: None (occurrence: None)
  Receive Date: 20120510
  Receipt Date: 20120502
  Transmission Date: 20120825
  Serious: Yes (Other)
  Sender: FDA-Public Use
  Company Number: PHHY2012FR031307

PATIENT
  Sex: Male
  Weight: 68 kg

DRUGS (5)
  1. NEBIVOLOL [Suspect]
     Dosage: 5 MG, QD
     Dates: start: 20120104, end: 20120109
  2. RASILEZ [Suspect]
     Indication: HYPERTENSION
     Dosage: 150 MG, QD
     Dates: start: 20120109, end: 20120424
  3. VASOBRAL [Concomitant]
  4. PRAVASTATIN [Concomitant]
     Indication: HYPERCHOLESTEROLAEMIA
     Dosage: 10 MG, QD
     Dates: start: 20070227
  5. NEBIVOLOL HCL [Suspect]
     Indication: HYPERTENSION
     Dates: start: 20090924, end: 20120104

REACTIONS (6)
  - PRURITUS [None]
  - ERYTHEMA [None]
  - SKIN OEDEMA [None]
  - PHOTOSENSITIVITY ALLERGIC REACTION [None]
  - ECZEMA [None]
  - ACARODERMATITIS [None]
